FAERS Safety Report 6676141-5 (Version None)
Quarter: 2010Q2

REPORT INFORMATION
  Report Type: 
  Country: None (occurrence: None)
  Receive Date: 20100412
  Receipt Date: 20100331
  Transmission Date: 20101027
  Serious: Yes (Hospitalization)
  Sender: FDA-Public Use
  Company Number: FR-KINGPHARMUSA00001-K201000377

PATIENT
  Age: 91 Year
  Sex: Female

DRUGS (11)
  1. ALTACE [Suspect]
     Indication: INFARCTION
     Dosage: 5 MG, QD
     Route: 048
     Dates: start: 20100205, end: 20100223
  2. ALTACE [Suspect]
     Dosage: 2.5 MG, QD
     Route: 048
     Dates: start: 20100224, end: 20100226
  3. RULID [Suspect]
     Indication: BRONCHITIS
     Dosage: 150 MG, BID
     Route: 048
     Dates: start: 20100204, end: 20100214
  4. AMOXICILLIN AND CLAVULANATE POTASSIUM [Suspect]
     Indication: BRONCHITIS
     Dosage: 3 G, QD
     Route: 048
     Dates: start: 20100204, end: 20100214
  5. BISOPROLOL FUMARATE [Suspect]
     Indication: INFARCTION
     Dosage: 5 MG, QD
     Route: 048
     Dates: start: 20100205, end: 20100301
  6. ADANCOR [Concomitant]
  7. IMOVANE [Concomitant]
  8. KARDEGIC [Concomitant]
  9. LASIX [Concomitant]
  10. PREVISCAN [Concomitant]
  11. DIFFU K [Concomitant]

REACTIONS (10)
  - ACUTE GENERALISED EXANTHEMATOUS PUSTULOSIS [None]
  - BREAST OEDEMA [None]
  - DERMATITIS EXFOLIATIVE [None]
  - EYE OEDEMA [None]
  - IMPETIGO [None]
  - INFLAMMATION [None]
  - LEUKOCYTOSIS [None]
  - LIP OEDEMA [None]
  - OEDEMA PERIPHERAL [None]
  - SKIN EXFOLIATION [None]
